FAERS Safety Report 9653741 (Version 1)
Quarter: 2013Q4

REPORT INFORMATION
  Report Type: Spontaneous
  Country: US (occurrence: None)
  Receive Date: 20131028
  Receipt Date: 20131028
  Transmission Date: 20140711
  Serious: Yes (Other)
  Sender: FDA-Public Use
  Company Number: FK201304738

PATIENT
  Sex: Male

DRUGS (1)
  1. CARBOPLATIN [Suspect]
     Indication: RETINAL DETACHMENT
     Dosage: 10 MG/ML

REACTIONS (5)
  - Scar [None]
  - Injection site haemorrhage [None]
  - Injection site swelling [None]
  - Retinoblastoma [None]
  - Disease recurrence [None]
